FAERS Safety Report 5370935-4 (Version None)
Quarter: 2007Q2

REPORT INFORMATION
  Report Type: 
  Country: None (occurrence: None)
  Receive Date: 20070626
  Receipt Date: 20070621
  Transmission Date: 20071010
  Serious: Yes (Hospitalization)
  Sender: FDA-Public Use
  Company Number: JP-ABBOTT-07P-087-0364587-00

PATIENT
  Sex: Male
  Weight: 10 kg

DRUGS (3)
  1. CEFZON SUSPENSION [Suspect]
     Indication: BALANOPOSTHITIS
     Route: 048
     Dates: start: 20070330, end: 20070331
  2. CEFZON SUSPENSION [Suspect]
     Indication: PENILE DISCHARGE
  3. GENTAMICIN SULFATE [Concomitant]
     Indication: PENILE DISCHARGE
     Dates: start: 20070330, end: 20070403

REACTIONS (5)
  - DECREASED APPETITE [None]
  - DEPRESSED LEVEL OF CONSCIOUSNESS [None]
  - HYPOGLYCAEMIA [None]
  - ORAL INTAKE REDUCED [None]
  - PYREXIA [None]
